FAERS Safety Report 5316971-5 (Version None)
Quarter: 2007Q2

REPORT INFORMATION
  Report Type: 
  Country: None (occurrence: None)
  Receive Date: 20070504
  Receipt Date: 20070427
  Transmission Date: 20071010
  Serious: Yes (Life-Threatening)
  Sender: FDA-Public Use
  Company Number: FR-PFIZER INC-2007017990

PATIENT
  Age: 79 Year
  Sex: Female

DRUGS (5)
  1. TRIFLUCAN [Suspect]
     Dates: start: 20060616, end: 20060619
  2. ARCALION [Suspect]
     Route: 048
     Dates: start: 20060601, end: 20060619
  3. PRIMPERAN INJ [Suspect]
     Dates: start: 20060619, end: 20060619
  4. DESLORATADINE [Suspect]
     Route: 048
     Dates: start: 20060615, end: 20060619
  5. ESIDRIX [Suspect]

REACTIONS (2)
  - SEPSIS [None]
  - STEVENS-JOHNSON SYNDROME [None]
